FAERS Safety Report 8863165 (Version 2)
Quarter: 2013Q4

REPORT INFORMATION
  Report Type: Spontaneous
  Country: US (occurrence: US)
  Receive Date: 20121026
  Receipt Date: 20131113
  Transmission Date: 20140711
  Serious: Yes (Other)
  Sender: FDA-Public Use
  Company Number: US-BAYER-2012-109996

PATIENT
  Age: 32 Year
  Sex: Female

DRUGS (1)
  1. MIRENA [Suspect]
     Indication: CONTRACEPTION
     Dosage: 20 MCG/24HR, CONT
     Route: 015
     Dates: start: 20110317, end: 20121106

REACTIONS (5)
  - Ovarian cyst [Recovered/Resolved]
  - Pelvic pain [Recovered/Resolved]
  - Abdominal pain [Recovered/Resolved]
  - Menstruation irregular [Not Recovered/Not Resolved]
  - Genital haemorrhage [Recovered/Resolved]
